FAERS Safety Report 16864701 (Version 1)
Quarter: 2019Q3

REPORT INFORMATION
  Report Type: Spontaneous
  Country: AE (occurrence: AE)
  Receive Date: 20190929
  Receipt Date: 20190929
  Transmission Date: 20191005
  Serious: Yes (Death, Congenital Anomaly)
  Sender: FDA-Public Use
  Company Number: PHHY2019AE225173

PATIENT

DRUGS (1)
  1. COSENTYX [Suspect]
     Active Substance: SECUKINUMAB
     Indication: FOETAL EXPOSURE DURING PREGNANCY
     Dosage: UNK (MOTHER DOSE: 300MG Q4W, SUBCUTANEOUS FOR PSORIASIS)
     Route: 064

REACTIONS (5)
  - Abdominal hernia [Fatal]
  - Foetal exposure during pregnancy [Unknown]
  - Gastroschisis [Fatal]
  - Premature baby [Fatal]
  - Cardiac disorder [Fatal]

NARRATIVE: CASE EVENT DATE: 201907
